FAERS Safety Report 13038023 (Version 1)
Quarter: 2016Q4

REPORT INFORMATION
  Report Type: Spontaneous
  Country: US (occurrence: US)
  Receive Date: 20161213
  Receipt Date: 20161213
  Transmission Date: 20170207
  Serious: Yes (Other)
  Sender: FDA-Public Use
  Company Number: None

PATIENT
  Age: 17 Year
  Sex: Male
  Weight: 59.4 kg

DRUGS (2)
  1. DAYTRANA [Suspect]
     Active Substance: METHYLPHENIDATE
     Indication: ATTENTION DEFICIT/HYPERACTIVITY DISORDER
     Dosage: ?          QUANTITY:1 SPRAY(S);?
     Route: 062
     Dates: end: 20161213
  2. DAYTRANA PATCHES [Concomitant]

REACTIONS (3)
  - Device difficult to use [None]
  - Application site reaction [None]
  - Application site erythema [None]

NARRATIVE: CASE EVENT DATE: 20161213
